FAERS Safety Report 21813779 (Version 1)
Quarter: 2023Q1

REPORT INFORMATION
  Report Type: Spontaneous
  Country: CA (occurrence: CA)
  Receive Date: 20230104
  Receipt Date: 20230104
  Transmission Date: 20230418
  Serious: Yes (Hospitalization, Other)
  Sender: FDA-Public Use
  Company Number: CA-AUROBINDO-AUR-APL-2022-056450

PATIENT
  Age: 42 Year
  Sex: Female

DRUGS (3)
  1. AMLODIPINE [Suspect]
     Active Substance: AMLODIPINE BESYLATE
     Indication: Blood pressure management
     Dosage: 2.5 MILLIGRAM
     Route: 048
  2. HUMIRA [Suspect]
     Active Substance: ADALIMUMAB
     Indication: Crohn^s disease
     Dosage: UNK
     Route: 058
  3. HUMIRA [Suspect]
     Active Substance: ADALIMUMAB
     Dosage: 40 MILLIGRAM, EVERY WEEK
     Route: 058

REACTIONS (18)
  - Non-alcoholic steatohepatitis [Unknown]
  - Bladder dilatation [Unknown]
  - Blood iron decreased [Unknown]
  - Cardiac failure congestive [Unknown]
  - Gastrointestinal motility disorder [Unknown]
  - Haemorrhoids [Unknown]
  - Hepatic cirrhosis [Unknown]
  - Intra-abdominal fluid collection [Unknown]
  - Malaise [Unknown]
  - Nausea [Unknown]
  - Oedema peripheral [Unknown]
  - Peripheral swelling [Unknown]
  - Pruritus [Unknown]
  - Urinary retention [Unknown]
  - Vomiting [Unknown]
  - Vulval abscess [Unknown]
  - Vulvovaginal mycotic infection [Unknown]
  - Vulvovaginal pain [Unknown]
